FAERS Safety Report 8543277-3 (Version None)
Quarter: 2012Q3

REPORT INFORMATION
  Report Type: 
  Country: None (occurrence: None)
  Receive Date: 20120719
  Receipt Date: 20120719
  Transmission Date: 20120928
  Serious: Yes (Death)
  Sender: FDA-Public Use
  Company Number: None

PATIENT
  Age: 62 Year
  Sex: Male
  Weight: 90 kg

DRUGS (1)
  1. PROFILNINE SD [Suspect]
     Dosage: 50 UNITS/KG IV
     Route: 042
     Dates: start: 20120630, end: 20120630

REACTIONS (6)
  - BLOOD PRESSURE DECREASED [None]
  - INTERNATIONAL NORMALISED RATIO INCREASED [None]
  - DISSEMINATED INTRAVASCULAR COAGULATION [None]
  - BRAIN MIDLINE SHIFT [None]
  - CEREBRAL HAEMORRHAGE [None]
  - HYDROCEPHALUS [None]
